FAERS Safety Report 23700793 (Version 1)
Quarter: 2024Q2

REPORT INFORMATION
  Report Type: Other
  Country: US (occurrence: None)
  Receive Date: 20240403
  Receipt Date: 20240403
  Transmission Date: 20240715
  Serious: Yes (Hospitalization)
  Sender: FDA-Public Use
  Company Number: US-ROCHE-3533684

PATIENT
  Age: 48 Year
  Sex: Female

DRUGS (1)
  1. OCREVUS [Suspect]
     Active Substance: OCRELIZUMAB
     Indication: Multiple sclerosis
     Dosage: 300 MG ON DAYS 1 AND 300 MG 2 WEEKS LATER THEN 600 MG EVERY 6 MONTHS
     Route: 042
     Dates: start: 2021

REACTIONS (2)
  - Influenza [Unknown]
  - Pneumonia [Unknown]
